FAERS Safety Report 12485532 (Version 2)
Quarter: 2016Q3

REPORT INFORMATION
  Report Type: Spontaneous
  Country: DK (occurrence: DK)
  Receive Date: 20160621
  Receipt Date: 20160705
  Transmission Date: 20161109
  Serious: Yes (Life-Threatening)
  Sender: FDA-Public Use
  Company Number: DK-JNJFOC-20160613360

PATIENT
  Age: 34 Year
  Sex: Male

DRUGS (4)
  1. FENTANYL. [Suspect]
     Active Substance: FENTANYL
     Indication: ANALGESIC THERAPY
     Route: 048
  2. FENTANYL. [Suspect]
     Active Substance: FENTANYL
     Indication: ANALGESIC THERAPY
     Route: 048
  3. FENTANYL. [Suspect]
     Active Substance: FENTANYL
     Indication: INSOMNIA
     Route: 048
  4. FENTANYL. [Suspect]
     Active Substance: FENTANYL
     Indication: INSOMNIA
     Route: 048

REACTIONS (7)
  - Muscle spasms [Unknown]
  - Seizure [Unknown]
  - Overdose [Unknown]
  - Respiratory failure [Unknown]
  - Drug abuse [Unknown]
  - Loss of consciousness [Unknown]
  - Intentional product use issue [Unknown]
